FAERS Safety Report 9880972 (Version 1)
Quarter: 2014Q1

REPORT INFORMATION
  Report Type: Spontaneous
  Country: FR (occurrence: FR)
  Receive Date: 20140207
  Receipt Date: 20140207
  Transmission Date: 20141002
  Serious: Yes (Hospitalization)
  Sender: FDA-Public Use
  Company Number: FR-NOVOPROD-399421

PATIENT
  Age: 24 Year
  Sex: Female

DRUGS (5)
  1. VICTOZA [Suspect]
     Indication: TYPE 1 DIABETES MELLITUS
     Dosage: UNK (ONE PHARMACEUTICAL DOSE DAILY)
     Route: 058
     Dates: start: 20131126, end: 20131127
  2. VICTOZA [Suspect]
     Indication: OFF LABEL USE
  3. DIAMICRON [Suspect]
     Indication: TYPE 1 DIABETES MELLITUS
     Dosage: 60 MG, BID
     Route: 048
     Dates: start: 20131126, end: 20131127
  4. LEVEMIR [Concomitant]
     Indication: DIABETES MELLITUS
     Dosage: 24 IU, QD
     Route: 058
     Dates: start: 201211
  5. LEVOTHYROX 125 [Concomitant]
     Indication: HYPOTHYROIDISM
     Dosage: UNK
     Route: 065
     Dates: start: 2012

REACTIONS (5)
  - Pancreatitis [Recovered/Resolved]
  - Lipase increased [Recovered/Resolved]
  - Vomiting [Recovered/Resolved]
  - Exposure during pregnancy [Unknown]
  - Off label use [Unknown]
